FAERS Safety Report 6686502-6 (Version None)
Quarter: 2010Q2

REPORT INFORMATION
  Report Type: 
  Country: None (occurrence: None)
  Receive Date: 20100419
  Receipt Date: 20100415
  Transmission Date: 20101027
  Serious: Yes (Death)
  Sender: FDA-Public Use
  Company Number: US-GILEAD-2010-0028534

PATIENT
  Sex: Female
  Weight: 72.64 kg

DRUGS (13)
  1. LETAIRIS [Suspect]
     Indication: PULMONARY ARTERIAL HYPERTENSION
     Route: 048
     Dates: start: 20090522
  2. OXYGEN [Concomitant]
  3. ASPIRIN [Concomitant]
  4. CARVEDILOL [Concomitant]
  5. FUROSEMIDE [Concomitant]
  6. ADVAIR DISKUS 100/50 [Concomitant]
  7. XOPENEX [Concomitant]
  8. SPIRIVA [Concomitant]
  9. PROAIR HFA [Concomitant]
  10. METHYLPREDNISOLONE [Concomitant]
  11. NEXIUM [Concomitant]
  12. MULTI-VITAMIN [Concomitant]
  13. IRON [Concomitant]

REACTIONS (1)
  - DEATH [None]
